FAERS Safety Report 7044696-7 (Version None)
Quarter: 2010Q4

REPORT INFORMATION
  Report Type: 
  Country: None (occurrence: None)
  Receive Date: 20101014
  Receipt Date: 20101006
  Transmission Date: 20110411
  Serious: Yes (Hospitalization)
  Sender: FDA-Public Use
  Company Number: FR-BAXTER-2009BH005817

PATIENT
  Age: 62 Year
  Sex: Male

DRUGS (8)
  1. CYCLOPHOSPHAMIDE [Suspect]
     Indication: B-CELL LYMPHOMA STAGE IV
     Route: 042
     Dates: start: 20081027, end: 20081208
  2. UROMITEXAN BAXTER [Suspect]
     Indication: B-CELL LYMPHOMA STAGE IV
     Route: 042
     Dates: start: 20081027, end: 20081208
  3. METHOTREXATE GENERIC [Suspect]
     Indication: B-CELL LYMPHOMA STAGE IV
     Route: 065
     Dates: start: 20081028, end: 20081209
  4. RITUXIMAB [Suspect]
     Indication: B-CELL LYMPHOMA STAGE IV
     Route: 042
     Dates: start: 20081028, end: 20081209
  5. DOXORUBICIN HCL [Suspect]
     Indication: B-CELL LYMPHOMA STAGE IV
     Route: 042
     Dates: start: 20081027, end: 20081208
  6. ONCOVIN [Suspect]
     Indication: B-CELL LYMPHOMA STAGE IV
     Route: 042
     Dates: start: 20081027, end: 20081208
  7. CARDIOXANE [Suspect]
     Indication: PROPHYLAXIS
     Route: 042
     Dates: start: 20081027, end: 20081208
  8. STARASID [Suspect]
     Indication: B-CELL LYMPHOMA STAGE IV
     Route: 065
     Dates: start: 20081028, end: 20081209

REACTIONS (1)
  - INTERSTITIAL LUNG DISEASE [None]
